FAERS Safety Report 23062556 (Version 9)
Quarter: 2024Q1

REPORT INFORMATION
  Report Type: Spontaneous
  Country: US (occurrence: US)
  Receive Date: 20231013
  Receipt Date: 20240328
  Transmission Date: 20240409
  Serious: Yes (Other)
  Sender: FDA-Public Use
  Company Number: US-GLAXOSMITHKLINE-US2023AMR140021

PATIENT

DRUGS (2)
  1. ZEJULA [Suspect]
     Active Substance: NIRAPARIB
     Indication: Fallopian tube cancer
     Dosage: 200 MG, QD
  2. ZEJULA [Suspect]
     Active Substance: NIRAPARIB
     Indication: Ovarian cancer
     Dosage: 100 MG, QD

REACTIONS (14)
  - Stoma obstruction [Unknown]
  - Surgery [Unknown]
  - Nausea [Unknown]
  - Fatigue [Not Recovered/Not Resolved]
  - Sluggishness [Unknown]
  - Dyspepsia [Unknown]
  - Gait disturbance [Not Recovered/Not Resolved]
  - Eructation [Unknown]
  - Dizziness [Unknown]
  - Blood potassium decreased [Unknown]
  - Muscular weakness [Unknown]
  - Haemoglobin decreased [Unknown]
  - Palpitations [Unknown]
  - Constipation [Unknown]

NARRATIVE: CASE EVENT DATE: 20231009
